FAERS Safety Report 8496762-7 (Version None)
Quarter: 2012Q3

REPORT INFORMATION
  Report Type: 
  Country: None (occurrence: None)
  Receive Date: 20120709
  Receipt Date: 20120629
  Transmission Date: 20120928
  Serious: Yes (Other)
  Sender: FDA-Public Use
  Company Number: CA-ABBOTT-11P-028-0847932-03

PATIENT
  Sex: Male
  Weight: 59 kg

DRUGS (33)
  1. HUMIRA [Suspect]
     Indication: CROHN'S DISEASE
     Dosage: ONCE
     Route: 058
     Dates: start: 20080408, end: 20080408
  2. EXTRA STRENGTH TYLENOL [Concomitant]
     Indication: HEADACHE
     Dates: start: 19950601
  3. AVELOX [Concomitant]
     Indication: CHOLANGITIS
     Route: 042
     Dates: start: 20110716
  4. HUMIRA [Suspect]
     Dosage: (WEEK 2)
     Route: 058
  5. HUMIRA [Suspect]
     Route: 058
     Dates: end: 20110803
  6. PREDNISONE [Concomitant]
     Indication: CROHN'S DISEASE
     Dosage: IN SLOW TAPERING
     Dates: start: 20080125, end: 20090127
  7. CARBOCAL D [Concomitant]
     Indication: OSTEOPOROSIS PROPHYLAXIS
  8. PALAFER [Concomitant]
     Indication: ANAEMIA
     Dates: start: 20081201
  9. MAGNESIUM SULFATE [Concomitant]
     Indication: HYPOMAGNESAEMIA
     Route: 042
     Dates: start: 20110717, end: 20110717
  10. BISACODYL [Concomitant]
     Indication: BOWEL PREPARATION
     Route: 048
     Dates: start: 20110724, end: 20110724
  11. HUMIRA [Suspect]
     Route: 058
     Dates: start: 20111116, end: 20111203
  12. CARBOCAL D [Concomitant]
     Indication: STEROID THERAPY
     Dates: start: 19990501
  13. NEORAL [Concomitant]
     Dosage: AT NIGHT
     Dates: start: 20091003
  14. PEG-LYTE [Concomitant]
     Indication: BOWEL PREPARATION
     Route: 048
     Dates: start: 20110724, end: 20110724
  15. PREDNISONE [Concomitant]
     Dates: start: 20090128, end: 20090506
  16. APO-NAPROSYN [Concomitant]
     Indication: ARTHRALGIA
     Dosage: TWICE A DAY BUT AS NEEDED
     Dates: start: 20081101
  17. PEG-LYTE [Concomitant]
     Indication: COLONOSCOPY
  18. HUMIRA [Suspect]
     Route: 058
     Dates: start: 20110819, end: 20111102
  19. TYLENOL ARTHRITIS [Concomitant]
     Indication: ARTHRALGIA
     Dates: start: 20090801
  20. GRAVOL TAB [Concomitant]
     Indication: NAUSEA
     Route: 042
     Dates: start: 20110716, end: 20110716
  21. VANCOMYCIN [Concomitant]
     Indication: CHOLANGITIS
     Route: 042
     Dates: start: 20110716
  22. PREDNISONE [Concomitant]
     Route: 048
     Dates: start: 20100901, end: 20101001
  23. PANTOPRAZOLE SODIUM [Concomitant]
     Indication: GASTROINTESTINAL HAEMORRHAGE
     Route: 048
     Dates: start: 20101019
  24. IMURAN [Concomitant]
     Indication: CROHN'S DISEASE
     Dates: start: 19950801
  25. NEORAL [Concomitant]
     Indication: PROPHYLAXIS AGAINST TRANSPLANT REJECTION
     Dates: start: 19950801, end: 20091002
  26. NEORAL [Concomitant]
     Dates: start: 20091003
  27. HUMIRA [Suspect]
  28. PREDNISONE [Concomitant]
     Indication: DRUG DEPENDENCE
     Dates: start: 20110324
  29. IMURAN [Concomitant]
     Indication: PROPHYLAXIS AGAINST TRANSPLANT REJECTION
  30. BISACODYL [Concomitant]
     Indication: COLONOSCOPY
  31. PREDNISONE [Concomitant]
     Dates: start: 20090507, end: 20100901
  32. PANTOPRAZOLE SODIUM [Concomitant]
     Indication: PROPHYLAXIS AGAINST GASTROINTESTINAL ULCER
  33. ACETAMINOPHEN [Concomitant]
     Indication: PYREXIA
     Dosage: 2 TABLETS ONCE
     Route: 048
     Dates: start: 20110716, end: 20110716

REACTIONS (1)
  - LEIOMYOMA [None]
